FAERS Safety Report 16437516 (Version 1)
Quarter: 2019Q2

REPORT INFORMATION
  Report Type: Spontaneous
  Country: FR (occurrence: FR)
  Receive Date: 20190615
  Receipt Date: 20190615
  Transmission Date: 20190711
  Serious: Yes (Hospitalization)
  Sender: FDA-Public Use
  Company Number: FR-ACCORD-132782

PATIENT
  Sex: Female
  Weight: 56.3 kg

DRUGS (3)
  1. UVEDOSE [Suspect]
     Active Substance: CHOLECALCIFEROL
     Indication: OSTEOPOROSIS
     Dosage: 100,000 IU ORAL SOLUTION IN AMPOULE
     Route: 048
     Dates: start: 2016, end: 20190413
  2. HYDROCHLOROTHIAZIDE. [Suspect]
     Active Substance: HYDROCHLOROTHIAZIDE
     Indication: PRODUCT USED FOR UNKNOWN INDICATION
     Route: 048
     Dates: end: 20190413
  3. CALCIDOSE VITAMIN D [Suspect]
     Active Substance: CALCIUM CARBONATE\CHOLECALCIFEROL
     Indication: OSTEOPOROSIS
     Dosage: ORAL POWDER IN SACHET-DOSE
     Route: 048
     Dates: start: 2016, end: 20190413

REACTIONS (5)
  - Medication error [Unknown]
  - Hypercalcaemia [Recovered/Resolved]
  - Psychomotor skills impaired [Recovered/Resolved]
  - Acute kidney injury [Recovered/Resolved]
  - Vitamin D increased [Recovered/Resolved]

NARRATIVE: CASE EVENT DATE: 2016
